FAERS Safety Report 25652881 (Version 2)
Quarter: 2025Q3

REPORT INFORMATION
  Report Type: Spontaneous
  Country: US (occurrence: US)
  Receive Date: 20250807
  Receipt Date: 20250814
  Transmission Date: 20251020
  Serious: No
  Sender: SANOFI AVENTIS
  Company Number: US-SANOFI-02610413

PATIENT
  Age: 55 Year
  Sex: Female
  Weight: 112.3 kg

DRUGS (1)
  1. DUPIXENT [Suspect]
     Active Substance: DUPILUMAB
     Indication: Neurodermatitis
     Dosage: 300 MG, QOW
     Route: 058
     Dates: start: 2025

REACTIONS (9)
  - Injection site pain [Unknown]
  - Product preparation error [Unknown]
  - Skin lesion [Unknown]
  - Pain of skin [Unknown]
  - Skin swelling [Unknown]
  - Condition aggravated [Unknown]
  - Skin mass [Unknown]
  - Accidental exposure to product [Unknown]
  - Exposure via skin contact [Unknown]

NARRATIVE: CASE EVENT DATE: 20250701
